FAERS Safety Report 19413379 (Version 6)
Quarter: 2021Q4

REPORT INFORMATION
  Report Type: Report from Study
  Country: US (occurrence: US)
  Receive Date: 20210615
  Receipt Date: 20211009
  Transmission Date: 20220303
  Serious: Yes (Other)
  Sender: FDA-Public Use
  Company Number: US-NOVARTISPH-NVSC2021US134002

PATIENT
  Sex: Male

DRUGS (1)
  1. ENTRESTO [Suspect]
     Active Substance: SACUBITRIL\VALSARTAN
     Indication: Cardiac failure
     Dosage: 1 DF, BID
     Route: 048
     Dates: start: 20210601

REACTIONS (8)
  - Ulcer haemorrhage [Recovering/Resolving]
  - Stress [Recovering/Resolving]
  - Blood glucose increased [Recovering/Resolving]
  - Vomiting [Recovering/Resolving]
  - Anaemia [Unknown]
  - Fatigue [Unknown]
  - Wrong technique in product usage process [Recovered/Resolved]
  - Product dose omission issue [Recovering/Resolving]
